FAERS Safety Report 9088989 (Version 1)
Quarter: 2013Q1

REPORT INFORMATION
  Report Type: Spontaneous
  Country: US (occurrence: US)
  Receive Date: 20130130
  Receipt Date: 20130130
  Transmission Date: 20140127
  Serious: Yes (Hospitalization, Other)
  Sender: FDA-Public Use
  Company Number: US-RB-049055-13

PATIENT
  Age: 37 Year
  Sex: Male

DRUGS (9)
  1. SUBOXONE FILM [Suspect]
     Indication: DRUG DEPENDENCE
     Dosage: SUBOXONE FILM
     Route: 060
     Dates: start: 2010
  2. SEROQUEL [Suspect]
     Indication: TACHYPHRENIA
     Dosage: DOSING DETAILS UNKNOWN
     Route: 048
     Dates: end: 201301
  3. SEROQUEL [Suspect]
     Dosage: DOSING DETAILS UNKNOWN
     Route: 048
     Dates: start: 201301
  4. CELEXA [Suspect]
     Dosage: DOSING DETAILS UNKNOWN
     Route: 048
     Dates: end: 201301
  5. CELEXA [Suspect]
     Indication: DEPRESSION
     Dosage: DOSING DETAILS UNKNOWN
     Route: 048
     Dates: start: 201301
  6. ADDERALL [Suspect]
     Indication: ATTENTION DEFICIT/HYPERACTIVITY DISORDER
     Dosage: DOSING DETAILS UNKNOWN
     Route: 048
     Dates: end: 201301
  7. ADDERALL [Suspect]
     Dosage: DOSING DETAILS UNKNOWN
     Route: 048
     Dates: start: 201301
  8. KLONOPIN [Suspect]
     Dosage: DOSING DETAILS UNKNOWN
     Route: 048
     Dates: end: 201301
  9. KLONOPIN [Suspect]
     Indication: ANXIETY
     Dosage: DOSING DETAILS UNKNOWN
     Route: 048
     Dates: start: 201301

REACTIONS (1)
  - Suicidal ideation [Recovered/Resolved]
